FAERS Safety Report 9696890 (Version 2)
Quarter: 2013Q4

REPORT INFORMATION
  Report Type: Spontaneous
  Country: US (occurrence: US)
  Receive Date: 20131119
  Receipt Date: 20131119
  Transmission Date: 20140711
  Serious: No
  Sender: FDA-Public Use
  Company Number: US-GILEAD-2007-0013508

PATIENT
  Sex: Male
  Weight: 86.18 kg

DRUGS (9)
  1. LETAIRIS [Suspect]
     Indication: PULMONARY ARTERIAL HYPERTENSION
     Route: 048
     Dates: start: 20070713, end: 20070809
  2. LOPRESSOR [Concomitant]
     Route: 048
  3. LASIX [Concomitant]
     Route: 048
  4. AMARYL [Concomitant]
     Route: 048
  5. COUMADINE [Concomitant]
     Route: 048
  6. NORVASC [Concomitant]
     Route: 048
  7. ATACAND [Concomitant]
     Route: 048
  8. ALLOPURINOL [Concomitant]
     Route: 048
  9. POTASSIUM CHLORIDE [Concomitant]
     Route: 048

REACTIONS (4)
  - Nausea [Recovered/Resolved]
  - Vomiting [Recovered/Resolved]
  - Diarrhoea [Recovered/Resolved]
  - Oedema peripheral [Recovered/Resolved]
